FAERS Safety Report 9974274 (Version 1)
Quarter: 2014Q1

REPORT INFORMATION
  Report Type: Report from Study
  Country: US (occurrence: US)
  Receive Date: 20140306
  Receipt Date: 20140306
  Transmission Date: 20141002
  Serious: No
  Sender: FDA-Public Use
  Company Number: US-ABBVIE-13P-163-1158810-00

PATIENT
  Age: 30 Year
  Sex: Male

DRUGS (5)
  1. HUMIRA [Suspect]
     Indication: RHEUMATOID ARTHRITIS
     Dates: start: 20130914
  2. MELOXICAM [Concomitant]
     Indication: ARTHRALGIA
  3. FISH OIL [Concomitant]
     Indication: SUPPLEMENTATION THERAPY
     Dosage: DAILY
  4. VITAMIN C [Concomitant]
     Indication: SUPPLEMENTATION THERAPY
  5. VITAMIN D [Concomitant]
     Indication: SUPPLEMENTATION THERAPY

REACTIONS (4)
  - Incorrect dose administered [Unknown]
  - Injection site pain [Not Recovered/Not Resolved]
  - Injection site papule [Not Recovered/Not Resolved]
  - Device malfunction [Unknown]
